FAERS Safety Report 4727269-8 (Version None)
Quarter: 2005Q3

REPORT INFORMATION
  Report Type: 
  Country: None (occurrence: None)
  Receive Date: 20050728
  Receipt Date: 20050718
  Transmission Date: 20060218
  Serious: Yes (Hospitalization)
  Sender: FDA-Public Use
  Company Number: FR-GLAXOSMITHKLINE-B0388107A

PATIENT
  Age: 78 Year
  Sex: Male

DRUGS (8)
  1. DEROXAT [Suspect]
     Indication: DRUG USE FOR UNKNOWN INDICATION
     Dosage: 20MG PER DAY
     Route: 048
     Dates: start: 20030429
  2. PREVISCAN [Suspect]
     Indication: ATRIAL FIBRILLATION
     Route: 048
     Dates: end: 20050601
  3. NEO-MERCAZOLE TAB [Concomitant]
     Dosage: 15MG PER DAY
     Route: 048
  4. XATRAL [Concomitant]
     Dosage: 10MG PER DAY
     Route: 048
  5. APROVEL [Concomitant]
     Indication: ESSENTIAL HYPERTENSION
     Dosage: 150MG PER DAY
     Route: 048
  6. DI ANTALVIC [Concomitant]
     Dosage: 2CAP PER DAY
     Route: 048
  7. PRAXILENE [Concomitant]
     Dosage: 20MG THREE TIMES PER DAY
  8. TAHOR [Concomitant]
     Dosage: 40MG PER DAY

REACTIONS (5)
  - DRUG INTERACTION [None]
  - HAEMATOMA [None]
  - INTERNATIONAL NORMALISED RATIO INCREASED [None]
  - OVERDOSE [None]
  - PAIN [None]
